FAERS Safety Report 12946935 (Version 2)
Quarter: 2016Q4

REPORT INFORMATION
  Report Type: Spontaneous
  Country: US (occurrence: US)
  Receive Date: 20161116
  Receipt Date: 20161227
  Transmission Date: 20170207
  Serious: Yes (Other)
  Sender: FDA-Public Use
  Company Number: US-PFIZER INC-2016529203

PATIENT
  Age: 66 Year
  Sex: Male
  Weight: 104.7 kg

DRUGS (6)
  1. LIPITOR [Concomitant]
     Active Substance: ATORVASTATIN CALCIUM
     Indication: PRODUCT USED FOR UNKNOWN INDICATION
     Dosage: UNK UNK, DAILY [40 (UNIT NOT REPORTED)]
  2. MESNA. [Suspect]
     Active Substance: MESNA
     Indication: MALIGNANT FIBROUS HISTIOCYTOMA METASTATIC
     Dosage: UNK, CYCLIC[3 CYCLES (1 IN 1 CYCLICAL)]
  3. DOXORUBICIN HCL [Suspect]
     Active Substance: DOXORUBICIN HYDROCHLORIDE
     Indication: MALIGNANT FIBROUS HISTIOCYTOMA METASTATIC
     Dosage: UNK UNK, CYCLIC[3 CYCLES (1 IN 1 CYCLICAL)]
  4. IFOSFAMIDE. [Suspect]
     Active Substance: IFOSFAMIDE
     Indication: MALIGNANT FIBROUS HISTIOCYTOMA METASTATIC
     Dosage: UNK UNK, CYCLIC [3 CYCLES (1 IN 1 CYCLICAL)]
  5. AVAPRO [Concomitant]
     Active Substance: IRBESARTAN
     Indication: PRODUCT USED FOR UNKNOWN INDICATION
     Dosage: UNK UNK, DAILY[300 (UNITS NOT REPORTED)]
  6. ASA [Concomitant]
     Active Substance: ASPIRIN
     Indication: PRODUCT USED FOR UNKNOWN INDICATION
     Dosage: UNK

REACTIONS (2)
  - Neoplasm progression [Recovering/Resolving]
  - Oedema peripheral [Recovered/Resolved]

NARRATIVE: CASE EVENT DATE: 201408
